FAERS Safety Report 5591355-3 (Version None)
Quarter: 2008Q1

REPORT INFORMATION
  Report Type: 
  Country: None (occurrence: None)
  Receive Date: 20080115
  Receipt Date: 20080104
  Transmission Date: 20080703
  Serious: Yes (Hospitalization)
  Sender: FDA-Public Use
  Company Number: FR-BAXTER-2007BH008155

PATIENT
  Age: 57 Year
  Sex: Female

DRUGS (1)
  1. GAMMAGARD S/D [Suspect]
     Indication: SECONDARY IMMUNODEFICIENCY
     Dosage: DOSE UNIT:UNKNOWN
     Route: 042
     Dates: start: 20070827, end: 20070831

REACTIONS (4)
  - APPLICATION SITE PAIN [None]
  - HEADACHE [None]
  - LYMPHANGITIS [None]
  - PHLEBITIS SUPERFICIAL [None]
